FAERS Safety Report 15524926 (Version 1)
Quarter: 2018Q4

REPORT INFORMATION
  Report Type: Spontaneous
  Country: US (occurrence: US)
  Receive Date: 20181019
  Receipt Date: 20181019
  Transmission Date: 20190205
  Serious: Yes (Hospitalization)
  Sender: FDA-Public Use
  Company Number: US-ELI_LILLY_AND_COMPANY-US201810007126

PATIENT
  Age: 37 Year
  Sex: Female

DRUGS (3)
  1. VERZENIO [Suspect]
     Active Substance: ABEMACICLIB
     Indication: BREAST CANCER METASTATIC
     Dosage: 150 MG, BID
     Route: 048
     Dates: start: 20180514
  2. FASLODEX [Concomitant]
     Active Substance: FULVESTRANT
     Indication: BREAST CANCER METASTATIC
     Dosage: 500 MG, OTHER
     Route: 065
  3. TRELSTAR [Concomitant]
     Active Substance: TRIPTORELIN PAMOATE
     Indication: BREAST CANCER METASTATIC
     Dosage: 3.75 MG, MONTHLY (1/M)
     Route: 030

REACTIONS (1)
  - Pyelonephritis [Recovering/Resolving]
